FAERS Safety Report 18023741 (Version 1)
Quarter: 2020Q3

REPORT INFORMATION
  Report Type: Other
  Country: GB (occurrence: GB)
  Receive Date: 20200715
  Receipt Date: 20200715
  Transmission Date: 20201103
  Serious: Yes (Other)
  Sender: FDA-Public Use
  Company Number: GB-DEXPHARM-20200589

PATIENT
  Age: 16 Month
  Sex: Female

DRUGS (5)
  1. OMEPRAZOLE. [Suspect]
     Active Substance: OMEPRAZOLE
  2. CLOBAZAM. [Suspect]
     Active Substance: CLOBAZAM
  3. CHOLECALCIFEROL [Suspect]
     Active Substance: CHOLECALCIFEROL
  4. ABIDEC (ASCORBIC ACID, ERGOCALCIFROL, NICOTINAMIDE, RETINOL, RIBOFLAVIN, THIAMINE HYDROCHLORIDE) [Suspect]
     Active Substance: VITAMINS
  5. LANSOPRAZOLE. [Suspect]
     Active Substance: LANSOPRAZOLE

REACTIONS (1)
  - Hypocalcaemia [Recovered/Resolved]
